FAERS Safety Report 6590780-1 (Version None)
Quarter: 2010Q1

REPORT INFORMATION
  Report Type: 
  Country: None (occurrence: None)
  Receive Date: 20100219
  Receipt Date: 20100215
  Transmission Date: 20100710
  Serious: Yes (Death)
  Sender: FDA-Public Use
  Company Number: IT-ABBOTT-10P-083-0626426-00

PATIENT
  Sex: Female

DRUGS (9)
  1. CLARITHROMYCIN [Suspect]
     Indication: PNEUMONITIS
     Route: 042
     Dates: start: 20091128, end: 20091206
  2. RIFAXIMINA [Suspect]
     Indication: DIARRHOEA
     Route: 048
     Dates: start: 20091202, end: 20091206
  3. CEFTRIAXONE [Suspect]
     Indication: PNEUMONITIS
     Route: 042
     Dates: start: 20091128, end: 20091206
  4. ROCALTROL [Suspect]
     Indication: HYPOCALCAEMIA
     Route: 048
     Dates: start: 20091205, end: 20091206
  5. AMIODARONE HCL [Concomitant]
     Indication: ATRIAL FIBRILLATION
     Route: 048
     Dates: start: 20091128, end: 20091215
  6. PANTOPRAZOLE [Concomitant]
     Indication: GASTRITIS
     Route: 048
     Dates: start: 20091128, end: 20091215
  7. METOCLOPRAMIDE HYDROCHLORIDE [Concomitant]
     Indication: DRUG USE FOR UNKNOWN INDICATION
     Route: 042
     Dates: start: 20091202, end: 20091202
  8. CALCIUM GLUCONATE [Concomitant]
     Indication: DRUG USE FOR UNKNOWN INDICATION
     Route: 042
     Dates: start: 20091202, end: 20091206
  9. NITRO-DUR [Concomitant]
     Indication: CORONARY ARTERY DISEASE
     Route: 062
     Dates: start: 20091128, end: 20091206

REACTIONS (1)
  - ERYTHEMA [None]
